FAERS Safety Report 8349624-X (Version None)
Quarter: 2012Q2

REPORT INFORMATION
  Report Type: 
  Country: None (occurrence: None)
  Receive Date: 20120510
  Receipt Date: 20120503
  Transmission Date: 20120825
  Serious: Yes (Hospitalization)
  Sender: FDA-Public Use
  Company Number: US-BAYER-2011-112151

PATIENT
  Age: 24 Year
  Sex: Female
  Weight: 86 kg

DRUGS (2)
  1. YAZ [Suspect]
     Indication: PREMENSTRUAL SYNDROME
     Dosage: UNK
     Dates: start: 20070701, end: 20080401
  2. YAZ [Suspect]
     Dosage: UNK
     Dates: start: 20080501, end: 20080801

REACTIONS (12)
  - STRESS [None]
  - CONSTIPATION [None]
  - CHOLECYSTITIS ACUTE [None]
  - EMOTIONAL DISTRESS [None]
  - VOMITING [None]
  - DIARRHOEA [None]
  - FATIGUE [None]
  - ANXIETY [None]
  - CHOLELITHIASIS [None]
  - ABDOMINAL PAIN UPPER [None]
  - NAUSEA [None]
  - INJURY [None]
